FAERS Safety Report 15989041 (Version 1)
Quarter: 2019Q1

REPORT INFORMATION
  Report Type: Spontaneous
  Country: KR (occurrence: KR)
  Receive Date: 20190221
  Receipt Date: 20190221
  Transmission Date: 20190418
  Serious: Yes (Disabling, Other)
  Sender: FDA-Public Use
  Company Number: KR-MACLEODS PHARMACEUTICALS US LTD-MAC2019020173

PATIENT

DRUGS (2)
  1. LEVOBUPIVACAINE [Concomitant]
     Active Substance: LEVOBUPIVACAINE
     Indication: CERVICAL RADICULOPATHY
     Dosage: 2 MILLILITER INJECTION LEFT-SIDED CERVICAL TRANSFORAMINAL EPIDURAL STEROID INJECTION AT THE C6-C7 LE
     Route: 008
  2. TRIAMCINOLONE [Suspect]
     Active Substance: TRIAMCINOLONE
     Indication: CERVICAL RADICULOPATHY
     Dosage: 20 MILLIGRAM INJECTION LEFT-SIDED CERVICAL TRANSFORAMINAL EPIDURAL STEROID INJECTION AT THE C6-C7 LE
     Route: 008

REACTIONS (1)
  - Spinal cord infarction [Recovering/Resolving]
